FAERS Safety Report 8224409-3 (Version None)
Quarter: 2012Q1

REPORT INFORMATION
  Report Type: 
  Country: None (occurrence: None)
  Receive Date: 20120307
  Receipt Date: 20110412
  Transmission Date: 20120608
  Serious: No
  Sender: FDA-Public Use
  Company Number: PHHY2011US31331

PATIENT
  Age: 57 Year
  Sex: Male

DRUGS (1)
  1. AFINITOR [Suspect]
     Dosage: UNK

REACTIONS (3)
  - PAIN [None]
  - PERSONALITY CHANGE [None]
  - ANGER [None]
